FAERS Safety Report 10279727 (Version 1)
Quarter: 2014Q3

REPORT INFORMATION
  Report Type: Spontaneous
  Country: FR (occurrence: None)
  Receive Date: 20140702
  Receipt Date: 20140702
  Transmission Date: 20150326
  Serious: Yes (Life-Threatening)
  Sender: FDA-Public Use
  Company Number: 2407311

PATIENT
  Age: 32 Year
  Sex: Male

DRUGS (6)
  1. (PACLITAXEL) [Concomitant]
     Active Substance: PACLITAXEL
  2. (SOLUMEDROL) [Concomitant]
  3. (ZOPHREN /00955301/) [Concomitant]
     Active Substance: ONDANSETRON
  4. (RANITIDINE [Concomitant]
  5. ( DEXAMETHASONE [Concomitant]
  6. (CARBOPLATIN) [Suspect]
     Active Substance: CARBOPLATIN
     Indication: CHEMOTHERAPY
     Dosage: 05/19/2014 11:00 AM - 05/19/2014 1:30 PM ( 1 DAYS )
     Route: 041
     Dates: start: 20140519, end: 20140519

REACTIONS (3)
  - Angioedema [None]
  - Tachycardia [None]
  - Malaise [None]

NARRATIVE: CASE EVENT DATE: 20140519
